FAERS Safety Report 8299923-5 (Version None)
Quarter: 2012Q2

REPORT INFORMATION
  Report Type: 
  Country: None (occurrence: None)
  Receive Date: 20120420
  Receipt Date: 20081107
  Transmission Date: 20120825
  Serious: No
  Sender: FDA-Public Use
  Company Number: 2008BI031039

PATIENT
  Sex: Female

DRUGS (4)
  1. AVONEX [Concomitant]
     Indication: MULTIPLE SCLEROSIS
     Route: 030
     Dates: start: 20020116, end: 20080601
  2. TYSABRI [Suspect]
     Route: 042
     Dates: start: 20120202
  3. TYSABRI [Suspect]
     Route: 042
     Dates: start: 20080821, end: 20110323
  4. TYSABRI [Suspect]
     Indication: MULTIPLE SCLEROSIS
     Route: 042
     Dates: start: 20050109

REACTIONS (2)
  - MULTIPLE SCLEROSIS [None]
  - MEMORY IMPAIRMENT [None]
